FAERS Safety Report 6723983-3 (Version None)
Quarter: 2010Q2

REPORT INFORMATION
  Report Type: 
  Country: None (occurrence: None)
  Receive Date: 20100513
  Receipt Date: 20100505
  Transmission Date: 20101027
  Serious: Yes (Hospitalization)
  Sender: FDA-Public Use
  Company Number: US-ABBOTT-10P-163-0641728-00

PATIENT
  Sex: Male
  Weight: 108.96 kg

DRUGS (15)
  1. NIASPAN [Suspect]
     Indication: DRUG USE FOR UNKNOWN INDICATION
     Route: 048
     Dates: start: 20100401
  2. ASPIRIN [Concomitant]
     Indication: DRUG USE FOR UNKNOWN INDICATION
     Route: 048
  3. ANTARA (MICRONIZED) [Concomitant]
     Indication: BLOOD CHOLESTEROL INCREASED
     Route: 048
  4. NORVASC [Concomitant]
     Indication: HYPERTENSION
  5. CLARITIN [Concomitant]
     Indication: DRUG USE FOR UNKNOWN INDICATION
  6. LISINOPRIL [Concomitant]
     Indication: HYPERTENSION
     Route: 048
  7. METFORMIN HYDROCHLORIDE [Concomitant]
     Indication: DIABETES MELLITUS
     Route: 048
  8. IRON [Concomitant]
     Indication: MINERAL SUPPLEMENTATION
  9. FLOMAX [Concomitant]
     Indication: DRUG USE FOR UNKNOWN INDICATION
  10. ALLOPURINOL [Concomitant]
     Indication: NEPHROLITHIASIS
     Route: 048
  11. HYDROCHLOROTHIAZIDE [Concomitant]
     Indication: DIURETIC THERAPY
  12. KDUR [Concomitant]
     Indication: MINERAL SUPPLEMENTATION
     Route: 048
  13. POTASSIUM CITRATE [Concomitant]
     Indication: NEPHROLITHIASIS
     Route: 048
  14. LOVAZA [Concomitant]
     Indication: VITAMIN SUPPLEMENTATION
  15. VITAMIN TAB [Concomitant]
     Indication: VITAMIN SUPPLEMENTATION

REACTIONS (5)
  - ASTHENIA [None]
  - DIARRHOEA HAEMORRHAGIC [None]
  - FULL BLOOD COUNT DECREASED [None]
  - HAEMORRHAGE [None]
  - LOSS OF CONSCIOUSNESS [None]
